FAERS Safety Report 25567683 (Version 1)
Quarter: 2025Q3

REPORT INFORMATION
  Report Type: Spontaneous
  Country: US (occurrence: US)
  Receive Date: 20250716
  Receipt Date: 20250716
  Transmission Date: 20251021
  Serious: No
  Sender: CSL BEHRING
  Company Number: US-BEH-2025212280

PATIENT
  Sex: Female

DRUGS (6)
  1. PRIVIGEN [Suspect]
     Active Substance: HUMAN IMMUNOGLOBULIN G
     Indication: Mononeuropathy multiplex
     Dosage: 30 G, QMT (EVERY 4 WEEKS)
     Route: 042
     Dates: start: 202501
  2. PRIVIGEN [Suspect]
     Active Substance: HUMAN IMMUNOGLOBULIN G
     Indication: Arteritis
  3. RUXIENCE [Suspect]
     Active Substance: RITUXIMAB-PVVR
     Dates: start: 202502
  4. RUXIENCE [Suspect]
     Active Substance: RITUXIMAB-PVVR
     Route: 065
     Dates: start: 202506
  5. RUXIENCE [Concomitant]
     Active Substance: RITUXIMAB-PVVR
  6. RITUXAN [Concomitant]
     Active Substance: RITUXIMAB

REACTIONS (4)
  - Swelling [Recovering/Resolving]
  - Hypoaesthesia [Recovering/Resolving]
  - Sensory loss [Recovering/Resolving]
  - Product use in unapproved indication [Unknown]
